FAERS Safety Report 6540078-2 (Version None)
Quarter: 2010Q1

REPORT INFORMATION
  Report Type: 
  Country: None (occurrence: None)
  Receive Date: 20100115
  Receipt Date: 20100113
  Transmission Date: 20100710
  Serious: Yes (Death)
  Sender: FDA-Public Use
  Company Number: US-B.I. PHARMACEUTICALS,INC./RIDGEFIELD-2010-BP-00498YA

PATIENT
  Age: 49 Year
  Sex: Male

DRUGS (10)
  1. TAMSULOSIN HCL [Suspect]
     Route: 048
  2. QUETIAPINE [Suspect]
     Route: 048
  3. LISINOPRIL [Suspect]
     Route: 048
  4. BETA BLOCKING AGENT [Suspect]
     Route: 048
  5. DIPHENHYDRAMINE [Suspect]
     Route: 048
  6. BUPROPION [Suspect]
     Route: 048
  7. TOPIRAMATE [Suspect]
     Route: 048
  8. TIZANIDINE HCL [Suspect]
     Route: 048
  9. MIRTAZAPINE [Suspect]
     Route: 048
  10. COCAINE [Suspect]
     Route: 048

REACTIONS (4)
  - CARDIAC ARREST [None]
  - COMPLETED SUICIDE [None]
  - DRUG TOXICITY [None]
  - RESPIRATORY ARREST [None]
